FAERS Safety Report 9848863 (Version 3)
Quarter: 2017Q1

REPORT INFORMATION
  Report Type: Spontaneous
  Country: JP (occurrence: JP)
  Receive Date: 20140128
  Receipt Date: 20170125
  Transmission Date: 20170429
  Serious: Yes (Hospitalization, Other)
  Sender: FDA-Public Use
  Company Number: JP-JNJFOC-20140113484

PATIENT
  Age: 0 Year
  Sex: Male
  Weight: 2.61 kg

DRUGS (9)
  1. REMICADE [Suspect]
     Active Substance: INFLIXIMAB
     Indication: PUSTULAR PSORIASIS
     Route: 064
     Dates: start: 20131107
  2. REMICADE [Suspect]
     Active Substance: INFLIXIMAB
     Indication: PUSTULAR PSORIASIS
     Route: 064
     Dates: start: 20130731
  3. NEORAL [Suspect]
     Active Substance: CYCLOSPORINE
     Indication: PUSTULAR PSORIASIS
     Route: 048
     Dates: start: 201304, end: 20130407
  4. PREDONINE [Suspect]
     Active Substance: PREDNISOLONE
     Indication: PUSTULAR PSORIASIS
     Route: 065
     Dates: start: 20130709, end: 20130723
  5. REMICADE [Suspect]
     Active Substance: INFLIXIMAB
     Indication: PUSTULAR PSORIASIS
     Route: 064
     Dates: start: 20130814
  6. CALONAL [Suspect]
     Active Substance: ACETAMINOPHEN
     Indication: PYREXIA
     Dosage: 400MG DOSE FOR TREATMENT
     Route: 048
     Dates: start: 20130705, end: 20130716
  7. CEFZON [Suspect]
     Active Substance: CEFDINIR
     Indication: BIOPSY SKIN
     Dosage: 100MG DOSE FOR ONE TREATMENT
     Route: 048
     Dates: start: 20130709, end: 20130712
  8. REMICADE [Suspect]
     Active Substance: INFLIXIMAB
     Indication: PUSTULAR PSORIASIS
     Route: 064
     Dates: start: 20130912
  9. PREDNISOLONE. [Suspect]
     Active Substance: PREDNISOLONE
     Indication: PUSTULAR PSORIASIS
     Route: 048
     Dates: start: 20130724

REACTIONS (5)
  - Foetal heart rate deceleration abnormality [Unknown]
  - Premature baby [Not Recovered/Not Resolved]
  - Maternal condition affecting foetus [Unknown]
  - Foetal exposure during pregnancy [Recovered/Resolved]
  - Foetal distress syndrome [Recovered/Resolved]

NARRATIVE: CASE EVENT DATE: 20130410
